FAERS Safety Report 7479033-7 (Version None)
Quarter: 2011Q2

REPORT INFORMATION
  Report Type: 
  Country: None (occurrence: None)
  Receive Date: 20110513
  Receipt Date: 20110510
  Transmission Date: 20111010
  Serious: Yes (Life-Threatening, Hospitalization)
  Sender: FDA-Public Use
  Company Number: PHHY2011CH39507

PATIENT
  Age: 76 Year
  Sex: Female

DRUGS (8)
  1. ACETAMINOPHEN [Concomitant]
     Dosage: UNK UKN, UNK
     Route: 042
     Dates: start: 20110301
  2. DIPYRONE TAB [Suspect]
     Indication: BACK PAIN
     Dosage: 500 MG, BID
     Route: 048
     Dates: start: 20101001, end: 20110318
  3. ACETAMINOPHEN [Concomitant]
     Dosage: 1 G, QID
     Route: 048
     Dates: start: 20101201, end: 20110301
  4. DIAMICRON [Suspect]
     Indication: TYPE 2 DIABETES MELLITUS
     Dosage: 30 MG, UNK
     Route: 048
     Dates: end: 20110318
  5. ATENOLOL AND CHLORTHALIDONE [Suspect]
     Indication: ESSENTIAL HYPERTENSION
     Dosage: 1 DF, UNK
     Route: 048
     Dates: end: 20110318
  6. NEXIUM [Suspect]
     Indication: TYPE 2 DIABETES MELLITUS
     Dosage: 40 MG, UNK
     Route: 048
     Dates: end: 20110318
  7. ACETAMINOPHEN [Concomitant]
     Dosage: UNK UKN, UNK
     Route: 048
  8. METFORMIN HCL [Suspect]
     Indication: TYPE 2 DIABETES MELLITUS
     Dosage: 500 MG, BID
     Route: 048
     Dates: end: 20110318

REACTIONS (6)
  - PHARYNGITIS [None]
  - CELLULITIS [None]
  - ABSCESS [None]
  - AGRANULOCYTOSIS [None]
  - EPIGLOTTITIS [None]
  - NEUTROPENIA [None]
